FAERS Safety Report 6299551-7 (Version None)
Quarter: 2009Q3

REPORT INFORMATION
  Report Type: 
  Country: None (occurrence: None)
  Receive Date: 20090806
  Receipt Date: 20090727
  Transmission Date: 20100115
  Serious: Yes (Other)
  Sender: FDA-Public Use
  Company Number: GB-CVT-090383

PATIENT

DRUGS (6)
  1. RANEXA [Suspect]
     Indication: DRUG USE FOR UNKNOWN INDICATION
     Dosage: 750 MG, QD
     Route: 048
     Dates: start: 20090429, end: 20090501
  2. NICORANDIL [Concomitant]
     Indication: DRUG USE FOR UNKNOWN INDICATION
  3. SIMVASTATIN [Concomitant]
     Indication: DRUG USE FOR UNKNOWN INDICATION
  4. ISOSORBIDE MN [Concomitant]
     Indication: DRUG USE FOR UNKNOWN INDICATION
  5. SALMETEROL [Concomitant]
  6. TIOTROPIUM [Concomitant]

REACTIONS (1)
  - SYNCOPE [None]
